FAERS Safety Report 10403875 (Version 1)
Quarter: 2014Q1

REPORT INFORMATION
  Report Type: Spontaneous
  Country: US (occurrence: None)
  Receive Date: 20130815
  Receipt Date: 20130815
  Transmission Date: 20141002
  Serious: Yes (Other)
  Sender: FDA-Public Use
  Company Number: ADR-2012-02095

PATIENT
  Age: 50 Year
  Sex: Male

DRUGS (2)
  1. BACLOFEN INTRATHECAL (BACLOFEN INJECTION) 100 MCG/ML [Suspect]
     Indication: PAIN
  2. MORPHINE SULFATE [Concomitant]

REACTIONS (1)
  - Drug withdrawal syndrome [None]
